FAERS Safety Report 20069793 (Version 6)
Quarter: 2022Q2

REPORT INFORMATION
  Report Type: Report from Study
  Country: US (occurrence: US)
  Receive Date: 20211115
  Receipt Date: 20220413
  Transmission Date: 20220720
  Serious: Yes (Hospitalization, Other)
  Sender: FDA-Public Use
  Company Number: US-MALLINCKRODT-T202104947

PATIENT
  Sex: Female
  Weight: 60 kg

DRUGS (6)
  1. CORTICOTROPIN [Suspect]
     Active Substance: CORTICOTROPIN
     Indication: Nephrotic syndrome
     Dosage: 80 UNITS (1 MILLILITER), TWICE A WEEK
     Route: 058
     Dates: start: 202109, end: 2021
  2. CORTICOTROPIN [Suspect]
     Active Substance: CORTICOTROPIN
     Indication: Proteinuria
     Dosage: UNK
     Route: 065
     Dates: start: 2021, end: 202111
  3. CORTICOTROPIN [Suspect]
     Active Substance: CORTICOTROPIN
     Dosage: UNK
     Route: 065
     Dates: start: 202201, end: 202201
  4. COVID-19 VACCINE [Concomitant]
     Indication: COVID-19 immunisation
     Dosage: UNK, 1ST DOSES
     Route: 065
  5. COVID-19 VACCINE [Concomitant]
     Dosage: UNK, 2ND DOSES
     Route: 065
  6. COVID-19 VACCINE [Concomitant]
     Dosage: UNK, BOOSTER DOSE
     Route: 065
     Dates: start: 20211029, end: 20211029

REACTIONS (10)
  - Myocardial infarction [Unknown]
  - Swelling [Unknown]
  - Diabetes mellitus [Not Recovered/Not Resolved]
  - Drainage [Unknown]
  - Renal failure [Not Recovered/Not Resolved]
  - Hypertension [Not Recovered/Not Resolved]
  - Heart rate decreased [Not Recovered/Not Resolved]
  - Muscle spasms [Not Recovered/Not Resolved]
  - Cold sweat [Not Recovered/Not Resolved]
  - Herpes zoster [Unknown]

NARRATIVE: CASE EVENT DATE: 20210101
